FAERS Safety Report 7296608-9 (Version None)
Quarter: 2011Q1

REPORT INFORMATION
  Report Type: 
  Country: None (occurrence: None)
  Receive Date: 20110216
  Receipt Date: 20110210
  Transmission Date: 20110831
  Serious: Yes (Life-Threatening, Hospitalization, Other)
  Sender: FDA-Public Use
  Company Number: PHNR2004AU01323

PATIENT
  Sex: Male

DRUGS (12)
  1. CLOZARIL [Suspect]
     Dosage: 200 MG, UNK
  2. FLUVOXAMINE MALEATE [Concomitant]
  3. CLOZARIL [Suspect]
     Dosage: 500 MG, UNK
  4. MIRTAZAPINE [Concomitant]
     Dosage: 30 MG PER DAY
  5. VALIUM [Concomitant]
  6. AMISULPRIDE [Concomitant]
     Dosage: 400 MG PER DAY
  7. CLOZARIL [Suspect]
     Indication: SCHIZOPHRENIA
     Dosage: 400 MG, UNK
     Dates: start: 19940101
  8. CLOZARIL [Suspect]
     Dosage: 800 MG, UNK
  9. DIAZEPAM [Concomitant]
     Dosage: 10 MG PER DAY
  10. IMODIUM [Concomitant]
  11. CLOZARIL [Suspect]
     Dosage: 700 MG, UNK
  12. CLOZARIL [Suspect]
     Dosage: 900 MG, UNK

REACTIONS (6)
  - GASTROINTESTINAL CARCINOMA [None]
  - DEPRESSION [None]
  - ANTIPSYCHOTIC DRUG LEVEL INCREASED [None]
  - NAUSEA [None]
  - COLON CANCER [None]
  - DIARRHOEA [None]
